FAERS Safety Report 6535709-7 (Version None)
Quarter: 2010Q1

REPORT INFORMATION
  Report Type: 
  Country: None (occurrence: None)
  Receive Date: 20100113
  Receipt Date: 20100104
  Transmission Date: 20100710
  Serious: Yes (Death, Hospitalization)
  Sender: FDA-Public Use
  Company Number: US-JNJFOC-20100101756

PATIENT
  Age: 80 Year
  Sex: Male
  Weight: 45.36 kg

DRUGS (2)
  1. TYLENOL (CAPLET) [Suspect]
     Route: 048
  2. TYLENOL (CAPLET) [Suspect]
     Indication: PAIN
     Dosage: DOS: ONE CAPLET
     Route: 048

REACTIONS (2)
  - AORTIC ANEURYSM RUPTURE [None]
  - PRODUCT QUALITY ISSUE [None]
